FAERS Safety Report 17347437 (Version 1)
Quarter: 2020Q1

REPORT INFORMATION
  Report Type: Spontaneous
  Country: PL (occurrence: PL)
  Receive Date: 20200129
  Receipt Date: 20200129
  Transmission Date: 20200409
  Serious: No
  Sender: FDA-Public Use
  Company Number: PL-EXELIXIS-CABO-19023251

PATIENT
  Sex: Female

DRUGS (4)
  1. CABOMETYX [Suspect]
     Active Substance: CABOZANTINIB S-MALATE
     Indication: CLEAR CELL RENAL CELL CARCINOMA
     Dosage: 60 MG, QD
     Dates: start: 201709, end: 201806
  2. CABOMETYX [Suspect]
     Active Substance: CABOZANTINIB S-MALATE
     Dosage: 40 MG, QD
     Dates: start: 201905
  3. CABOMETYX [Suspect]
     Active Substance: CABOZANTINIB S-MALATE
     Dosage: 40 MG, QD
     Dates: start: 201806, end: 201902
  4. CABOMETYX [Suspect]
     Active Substance: CABOZANTINIB S-MALATE
     Dosage: 40 MG, QD
     Dates: start: 201903, end: 201904

REACTIONS (8)
  - Haematoma [Unknown]
  - Anaemia [Not Recovered/Not Resolved]
  - Hair colour changes [Not Recovered/Not Resolved]
  - Impaired healing [Recovering/Resolving]
  - Skin discolouration [Not Recovered/Not Resolved]
  - Hypertension [Not Recovered/Not Resolved]
  - Diarrhoea [Recovering/Resolving]
  - Skin lesion [Recovered/Resolved]

NARRATIVE: CASE EVENT DATE: 201806
